FAERS Safety Report 6781063-5 (Version None)
Quarter: 2010Q2

REPORT INFORMATION
  Report Type: 
  Country: None (occurrence: None)
  Receive Date: 20100621
  Receipt Date: 20100616
  Transmission Date: 20101027
  Serious: Yes (Other)
  Sender: FDA-Public Use
  Company Number: JP-SANOFI-AVENTIS-2010SA009224

PATIENT
  Age: 76 Year
  Sex: Male
  Weight: 62.1 kg

DRUGS (28)
  1. TAXOTERE [Suspect]
     Route: 041
     Dates: start: 20091208, end: 20091208
  2. TAXOTERE [Suspect]
     Route: 041
     Dates: start: 20100113, end: 20100113
  3. TAXOTERE [Suspect]
     Route: 041
     Dates: start: 20100215, end: 20100215
  4. TAXOTERE [Suspect]
     Route: 041
     Dates: start: 20100317, end: 20100317
  5. WARFARIN POTASSIUM [Suspect]
     Indication: ATRIAL FIBRILLATION
     Route: 048
     Dates: end: 20091220
  6. WARFARIN POTASSIUM [Suspect]
     Route: 048
     Dates: start: 20100102, end: 20100117
  7. WARFARIN POTASSIUM [Suspect]
     Route: 048
     Dates: start: 20100126, end: 20100217
  8. CARBOPLATIN [Concomitant]
     Route: 041
     Dates: start: 20091208, end: 20091208
  9. CARBOPLATIN [Concomitant]
     Route: 041
     Dates: start: 20100113, end: 20100113
  10. CARBOPLATIN [Concomitant]
     Route: 041
     Dates: start: 20100215, end: 20100215
  11. CARBOPLATIN [Concomitant]
     Route: 041
     Dates: start: 20100317, end: 20100317
  12. LASIX [Concomitant]
     Indication: CARDIAC FAILURE
     Route: 048
  13. ALDACTONE [Concomitant]
     Indication: CARDIAC FAILURE
     Route: 048
  14. DIGOXIN [Concomitant]
     Indication: ATRIAL FIBRILLATION
     Route: 048
  15. SALOBEL [Concomitant]
     Indication: HYPERURICAEMIA
     Route: 048
  16. GLYBURIDE [Concomitant]
     Indication: DIABETES MELLITUS
     Route: 048
  17. DECADRON [Concomitant]
     Indication: PREMEDICATION
     Dates: start: 20091208, end: 20091208
  18. DECADRON [Concomitant]
     Dates: start: 20100113, end: 20100113
  19. DECADRON [Concomitant]
     Dates: start: 20100215, end: 20100215
  20. DECADRON [Concomitant]
     Dates: start: 20100317, end: 20100317
  21. RAMELTEON [Concomitant]
     Indication: PREMEDICATION
     Dates: start: 20091208, end: 20091208
  22. RAMELTEON [Concomitant]
     Dates: start: 20100113, end: 20100113
  23. RAMELTEON [Concomitant]
     Dates: start: 20100215, end: 20100215
  24. RAMELTEON [Concomitant]
     Dates: start: 20100317, end: 20100317
  25. CHLOR-TRIMETON [Concomitant]
     Indication: PREMEDICATION
     Dates: start: 20091208, end: 20091208
  26. CHLOR-TRIMETON [Concomitant]
     Dates: start: 20100113, end: 20100113
  27. CHLOR-TRIMETON [Concomitant]
     Dates: start: 20100215, end: 20100215
  28. CHLOR-TRIMETON [Concomitant]
     Dates: start: 20100317, end: 20100317

REACTIONS (2)
  - EPISTAXIS [None]
  - PROTHROMBIN TIME PROLONGED [None]
